FAERS Safety Report 22162050 (Version 4)
Quarter: 2024Q1

REPORT INFORMATION
  Report Type: Spontaneous
  Country: US (occurrence: US)
  Receive Date: 20230331
  Receipt Date: 20240122
  Transmission Date: 20240410
  Serious: No
  Sender: FDA-Public Use
  Company Number: US-KARYOPHARM-2023KPT000785

PATIENT

DRUGS (26)
  1. XPOVIO [Suspect]
     Active Substance: SELINEXOR
     Indication: Plasma cell myeloma
     Dosage: 60 MG, WEEKLY
     Route: 048
     Dates: start: 20230109, end: 2023
  2. XPOVIO [Suspect]
     Active Substance: SELINEXOR
     Dosage: 60 MG, WEEKLY
     Route: 048
     Dates: start: 202312
  3. ATORVASTATIN [Concomitant]
     Active Substance: ATORVASTATIN
  4. GABAPENTIN [Concomitant]
     Active Substance: GABAPENTIN
  5. HYDROCHLOROTHIAZIDE [Concomitant]
     Active Substance: HYDROCHLOROTHIAZIDE
  6. METOPROLOL SUCCINATE [Concomitant]
     Active Substance: METOPROLOL SUCCINATE
  7. PANTOPRAZOLE [Concomitant]
     Active Substance: PANTOPRAZOLE
  8. VALCYTE [Concomitant]
     Active Substance: VALGANCICLOVIR HYDROCHLORIDE
  9. POTASSIUM CHLORIDE [Concomitant]
     Active Substance: POTASSIUM CHLORIDE
  10. ACYCLOVIR [Concomitant]
     Active Substance: ACYCLOVIR
  11. LOMOTIL [Concomitant]
     Active Substance: ATROPINE SULFATE\DIPHENOXYLATE HYDROCHLORIDE
  12. MONTELUKAST [Concomitant]
     Active Substance: MONTELUKAST SODIUM
  13. NYSTATIN [Concomitant]
     Active Substance: NYSTATIN
  14. ZOFRAN [Concomitant]
     Active Substance: ONDANSETRON HYDROCHLORIDE
  15. ZYPREXA [Concomitant]
     Active Substance: OLANZAPINE
  16. DEXAMETHASONE [Concomitant]
     Active Substance: DEXAMETHASONE
  17. BACTRIM [Concomitant]
     Active Substance: SULFAMETHOXAZOLE\TRIMETHOPRIM
  18. KYPROLIS [Concomitant]
     Active Substance: CARFILZOMIB
  19. LOPID [Concomitant]
     Active Substance: GEMFIBROZIL
  20. AZITHROMYCIN [Concomitant]
     Active Substance: AZITHROMYCIN
  21. CEFDINIR [Concomitant]
     Active Substance: CEFDINIR
  22. LOPERAMIDE HYDROCHLORIDE [Concomitant]
     Active Substance: LOPERAMIDE HYDROCHLORIDE
  23. PREDNISONE [Concomitant]
     Active Substance: PREDNISONE
  24. HYDROCORTISONE [Concomitant]
     Active Substance: HYDROCORTISONE
  25. POMALYST [Concomitant]
     Active Substance: POMALIDOMIDE
  26. KYPROLIS [Concomitant]
     Active Substance: CARFILZOMIB

REACTIONS (3)
  - Platelet count decreased [Not Recovered/Not Resolved]
  - Nausea [Unknown]
  - Product dose omission issue [Unknown]

NARRATIVE: CASE EVENT DATE: 20230101
